FAERS Safety Report 7010425 (Version 2)
Quarter: 2014Q3

REPORT INFORMATION
  Report Type: Spontaneous
  Country: US (occurrence: None)
  Receive Date: 20090526
  Receipt Date: 20140804
  Transmission Date: 20150326
  Serious: Yes (Hospitalization, Other)
  Sender: FDA-Public Use
  Company Number: 2009S1004068

PATIENT
  Age: 71 Year
  Sex: Female

DRUGS (12)
  1. HYDROCHLOROTHIAZIDE. [Concomitant]
     Active Substance: HYDROCHLOROTHIAZIDE
  2. POTASSIUM CHLORIDE. [Concomitant]
     Active Substance: POTASSIUM CHLORIDE
  3. PREDNISONE. [Concomitant]
     Active Substance: PREDNISONE
  4. PROTONIX [Concomitant]
     Active Substance: PANTOPRAZOLE SODIUM
  5. PHOSPHO-SODA [Suspect]
     Active Substance: SODIUM PHOSPHATE, DIBASIC\SODIUM PHOSPHATE, MONOBASIC
     Indication: COLONOSCOPY
     Dosage: PO
     Route: 048
     Dates: start: 20081202, end: 20081203
  6. CALCIUM [Concomitant]
     Active Substance: CALCIUM
  7. LISINOPRIL. [Concomitant]
     Active Substance: LISINOPRIL
  8. ACTONEL (RISEDRONATE SODIUM) [Concomitant]
  9. PRESERVISION AREDS (ASCORBIC ACID, TOCOPHERYL ACETATE, ZINC OXIDE, CUPRIC OXIDE, BETACAROTENE) [Concomitant]
  10. LUNESTA (ESZOPICLONE) [Concomitant]
  11. LASIX [Concomitant]
     Active Substance: FUROSEMIDE
  12. VITAMIN-D (VITAMIN D NOS) [Concomitant]

REACTIONS (22)
  - Myalgia [None]
  - Anaemia [None]
  - Dyspnoea exertional [None]
  - Oedema peripheral [None]
  - Oedema [None]
  - Asthenia [None]
  - Mouth ulceration [None]
  - Renal failure chronic [None]
  - Decreased appetite [None]
  - Azotaemia [None]
  - Temporal arteritis [None]
  - Proteinuria [None]
  - Diarrhoea [None]
  - Blood pressure increased [None]
  - Dysgeusia [None]
  - Anxiety [None]
  - Rash [None]
  - Headache [None]
  - Heart rate increased [None]
  - Joint swelling [None]
  - Visual impairment [None]
  - Hyperparathyroidism [None]

NARRATIVE: CASE EVENT DATE: 20081225
